FAERS Safety Report 6111192-0 (Version None)
Quarter: 2009Q1

REPORT INFORMATION
  Report Type: 
  Country: None (occurrence: None)
  Receive Date: 20090309
  Receipt Date: 20090309
  Transmission Date: 20090719
  Serious: Yes (Life-Threatening, Hospitalization)
  Sender: FDA-Public Use
  Company Number: None

PATIENT
  Sex: Male
  Weight: 84 kg

DRUGS (27)
  1. AZATHIOPRINE SODIUM [Suspect]
     Indication: IMMUNOSUPPRESSION
     Dosage: 175MG QD PO
     Route: 048
     Dates: start: 20020327, end: 20050413
  2. AZATHIOPRINE SODIUM [Suspect]
     Indication: LUNG TRANSPLANT
     Dosage: 175MG QD PO
     Route: 048
     Dates: start: 20020327, end: 20050413
  3. PROGRAF [Concomitant]
  4. PREDNISONE [Concomitant]
  5. CENTRUM [Concomitant]
  6. COLACE [Concomitant]
  7. COUMADIN [Concomitant]
  8. CARDIZEM [Concomitant]
  9. CELEXA [Concomitant]
  10. FLONASE [Concomitant]
  11. FOLIC ACID [Concomitant]
  12. LIPITOR [Concomitant]
  13. OSCAL [Concomitant]
  14. PREVACID [Concomitant]
  15. GATIFLOXACIN [Concomitant]
  16. REGLAN [Concomitant]
  17. FLOVENT [Concomitant]
  18. MAGNESIUM SULFATE [Concomitant]
  19. INSULIN [Concomitant]
  20. HEPARIN [Concomitant]
  21. VANCOMYCIN [Concomitant]
  22. HUMALOG [Concomitant]
  23. ROBITUSSIN [Concomitant]
  24. AMBIEN [Concomitant]
  25. NEUTROPHOS [Concomitant]
  26. AVANDIA [Concomitant]
  27. AMPHOTERICIN B [Concomitant]

REACTIONS (11)
  - ASPERGILLOSIS [None]
  - BENIGN PROSTATIC HYPERPLASIA [None]
  - DIABETIC KETOACIDOSIS [None]
  - LUNG HERNIA [None]
  - OXYGEN SATURATION DECREASED [None]
  - PLEURAL EFFUSION [None]
  - PNEUMONIA [None]
  - PULMONARY EMBOLISM [None]
  - PULMONARY OEDEMA [None]
  - RENAL TUBULAR NECROSIS [None]
  - URINARY TRACT INFECTION [None]
